FAERS Safety Report 7792029-0 (Version None)
Quarter: 2011Q4

REPORT INFORMATION
  Report Type: 
  Country: None (occurrence: None)
  Receive Date: 20111003
  Receipt Date: 20110926
  Transmission Date: 20120403
  Serious: Yes (Hospitalization)
  Sender: FDA-Public Use
  Company Number: JP-CEPHALON-2011001896

PATIENT
  Age: 69 Year
  Sex: Female

DRUGS (1)
  1. TREANDA [Suspect]
     Indication: B-CELL SMALL LYMPHOCYTIC LYMPHOMA
     Route: 042
     Dates: start: 20110305

REACTIONS (1)
  - BONE MARROW FAILURE [None]
